FAERS Safety Report 8971754 (Version 1)
Quarter: 2012Q4

REPORT INFORMATION
  Report Type: 
  Country: US (occurrence: US)
  Receive Date: 20121217
  Receipt Date: 20121217
  Transmission Date: 20130627
  Serious: No
  Sender: FDA-Public Use
  Company Number: US-BAYER-2012-131730

PATIENT
  Sex: Male

DRUGS (1)
  1. ALEVE GELCAP [Suspect]
     Dosage: 4 DF, UNK
     Dates: start: 20121130

REACTIONS (2)
  - Overdose [None]
  - Expired drug administered [None]
